FAERS Safety Report 5677952-5 (Version None)
Quarter: 2008Q1

REPORT INFORMATION
  Report Type: 
  Country: None (occurrence: None)
  Receive Date: 20080319
  Receipt Date: 20080306
  Transmission Date: 20080703
  Serious: Yes (Hospitalization)
  Sender: FDA-Public Use
  Company Number: 2008S1002791

PATIENT
  Age: 54 Year
  Sex: Male
  Weight: 90.7194 kg

DRUGS (1)
  1. FENTANYL TRANSDEMAL SYSTEM (100 UG/HR) [Suspect]
     Indication: CANCER PAIN
     Dosage: 100 UG;EVERY HOUR;TRANSDERMAL
     Route: 062
     Dates: start: 20080215, end: 20080216

REACTIONS (4)
  - ACCIDENTAL OVERDOSE [None]
  - DEPRESSED LEVEL OF CONSCIOUSNESS [None]
  - DIZZINESS [None]
  - HYPOVENTILATION [None]
